FAERS Safety Report 6449326-0 (Version None)
Quarter: 2009Q4

REPORT INFORMATION
  Report Type: 
  Country: None (occurrence: None)
  Receive Date: 20091120
  Receipt Date: 20081202
  Transmission Date: 20100525
  Serious: Yes (Other)
  Sender: FDA-Public Use
  Company Number: US-AMGEN-QUU319218

PATIENT
  Sex: Male
  Weight: 101.2 kg

DRUGS (4)
  1. ENBREL [Suspect]
     Indication: PSORIATIC ARTHROPATHY
     Route: 058
     Dates: start: 20020301
  2. NSAID [Suspect]
     Indication: DRUG USE FOR UNKNOWN INDICATION
  3. MOBIC [Concomitant]
     Dates: start: 20050901
  4. OMEPRAZOLE [Concomitant]
     Dates: start: 20050501

REACTIONS (2)
  - HYPERTENSION [None]
  - THROMBOSIS [None]
